FAERS Safety Report 7634152-7 (Version None)
Quarter: 2011Q3

REPORT INFORMATION
  Report Type: 
  Country: None (occurrence: None)
  Receive Date: 20110725
  Receipt Date: 20110721
  Transmission Date: 20111222
  Serious: No
  Sender: FDA-Public Use
  Company Number: US-PFIZER INC-2011166207

PATIENT
  Sex: Female
  Weight: 65.76 kg

DRUGS (4)
  1. ADVIL [Suspect]
     Indication: ARTHRITIS
  2. ADVIL [Suspect]
     Indication: OEDEMA PERIPHERAL
  3. ADVIL [Suspect]
     Indication: SCIATICA
     Dosage: 400 MG, 2X/DAY
     Route: 048
     Dates: start: 20110718, end: 20110719
  4. TYLENOL W/ CODEINE [Concomitant]
     Indication: BACK PAIN
     Dosage: UNK, 1X/DAY

REACTIONS (3)
  - DRUG INEFFECTIVE [None]
  - DIZZINESS [None]
  - VERTIGO [None]
